FAERS Safety Report 6735134-X (Version None)
Quarter: 2010Q2

REPORT INFORMATION
  Report Type: 
  Country: None (occurrence: None)
  Receive Date: 20100521
  Receipt Date: 20100514
  Transmission Date: 20101027
  Serious: Yes (Disabling, Other)
  Sender: FDA-Public Use
  Company Number: US-JNJFOC-20090502118

PATIENT
  Sex: Female
  Weight: 120.2 kg

DRUGS (1)
  1. ORTHO EVRA [Suspect]
     Indication: CONTRACEPTION
     Route: 062

REACTIONS (4)
  - GLAUCOMA [None]
  - RETINAL HAEMORRHAGE [None]
  - RETINAL VEIN THROMBOSIS [None]
  - VITREOUS DETACHMENT [None]
